FAERS Safety Report 16981266 (Version 1)
Quarter: 2019Q4

REPORT INFORMATION
  Report Type: Spontaneous
  Country: DE (occurrence: DE)
  Receive Date: 20191031
  Receipt Date: 20191031
  Transmission Date: 20200122
  Serious: Yes (Death, Other)
  Sender: FDA-Public Use
  Company Number: DE-009507513-1910DEU007173

PATIENT
  Age: 63 Year

DRUGS (10)
  1. CISPLATIN. [Suspect]
     Active Substance: CISPLATIN
     Indication: LUNG CARCINOMA CELL TYPE UNSPECIFIED STAGE IV
  2. NINTEDANIB [Suspect]
     Active Substance: NINTEDANIB
     Indication: BONE CANCER
     Dosage: 2 CYCLES
     Dates: start: 20190218, end: 20190311
  3. NINTEDANIB [Suspect]
     Active Substance: NINTEDANIB
     Indication: LUNG CARCINOMA CELL TYPE UNSPECIFIED STAGE IV
  4. PEMBROLIZUMAB. [Suspect]
     Active Substance: PEMBROLIZUMAB
     Indication: LUNG CARCINOMA CELL TYPE UNSPECIFIED STAGE IV
     Dosage: 3 CYCLES
  5. CISPLATIN. [Suspect]
     Active Substance: CISPLATIN
     Indication: BONE CANCER
     Dosage: 3 CYCLES
  6. PEMETREXED DISODIUM [Suspect]
     Active Substance: PEMETREXED DISODIUM
     Indication: BONE CANCER
     Dosage: 3 CYCLES
  7. DOCETAXEL. [Suspect]
     Active Substance: DOCETAXEL
     Indication: LUNG CARCINOMA CELL TYPE UNSPECIFIED STAGE IV
  8. DOCETAXEL. [Suspect]
     Active Substance: DOCETAXEL
     Indication: BONE CANCER
     Dosage: 2 CYCLES
     Dates: start: 20190218, end: 20190311
  9. PEMBROLIZUMAB. [Suspect]
     Active Substance: PEMBROLIZUMAB
     Indication: BONE CANCER
  10. PEMETREXED DISODIUM [Suspect]
     Active Substance: PEMETREXED DISODIUM
     Indication: LUNG CARCINOMA CELL TYPE UNSPECIFIED STAGE IV

REACTIONS (3)
  - Malignant neoplasm progression [Unknown]
  - Death [Fatal]
  - Decreased appetite [Unknown]

NARRATIVE: CASE EVENT DATE: 2019
